FAERS Safety Report 13317811 (Version 1)
Quarter: 2017Q1

REPORT INFORMATION
  Report Type: Spontaneous
  Country: US (occurrence: US)
  Receive Date: 20170309
  Receipt Date: 20170309
  Transmission Date: 20170428
  Serious: Yes (Other)
  Sender: FDA-Public Use
  Company Number: None

PATIENT
  Age: 70 Year
  Sex: Female
  Weight: 72 kg

DRUGS (17)
  1. CLOBETASOL [Concomitant]
     Active Substance: CLOBETASOL
  2. COQ10 [Concomitant]
     Active Substance: UBIDECARENONE
  3. OMEGA 3 OIL [Concomitant]
  4. VITAMIN D3 [Concomitant]
     Active Substance: CHOLECALCIFEROL
  5. LEXAPRO [Concomitant]
     Active Substance: ESCITALOPRAM OXALATE
  6. CALCIUM [Concomitant]
     Active Substance: CALCIUM
  7. BCOMPLEX [Concomitant]
  8. BIOTIN [Concomitant]
     Active Substance: BIOTIN
  9. L-GLUTAMINE [Concomitant]
  10. PROBIOTICS [Concomitant]
     Active Substance: PROBIOTICS NOS
  11. NIACIN. [Concomitant]
     Active Substance: NIACIN
  12. K2 [Concomitant]
     Active Substance: JWH-018
  13. LATUDA [Concomitant]
     Active Substance: LURASIDONE HYDROCHLORIDE
  14. KLONOPIN [Concomitant]
     Active Substance: CLONAZEPAM
  15. FOLATE [Concomitant]
     Active Substance: FOLATE SODIUM
  16. OMEPRAZOLE. [Suspect]
     Active Substance: OMEPRAZOLE
     Indication: GASTROOESOPHAGEAL REFLUX DISEASE
     Dosage: ?          QUANTITY:1 CAPSULE(S);?
     Route: 048
     Dates: start: 19900501, end: 20160715
  17. MAGNESIUM [Concomitant]
     Active Substance: MAGNESIUM

REACTIONS (3)
  - Bone disorder [None]
  - Malabsorption [None]
  - Spinal compression fracture [None]

NARRATIVE: CASE EVENT DATE: 20160928
